FAERS Safety Report 9678998 (Version 2)
Quarter: 2013Q4

REPORT INFORMATION
  Report Type: Spontaneous
  Country: US (occurrence: None)
  Receive Date: 20131107
  Receipt Date: 20131127
  Transmission Date: 20140711
  Serious: Yes (Hospitalization)
  Sender: FDA-Public Use
  Company Number: 2013NUEUSA00252

PATIENT
  Sex: Male

DRUGS (1)
  1. NUEDEXTA [Suspect]
     Indication: PRODUCT USED FOR UNKNOWN INDICATION
     Dosage: 1 CAP
     Dates: start: 201310, end: 201310

REACTIONS (4)
  - Hip fracture [None]
  - Fall [None]
  - Dizziness [None]
  - Confusional state [None]
